FAERS Safety Report 14918908 (Version 1)
Quarter: 2018Q2

REPORT INFORMATION
  Report Type: Spontaneous
  Country: US (occurrence: US)
  Receive Date: 20180521
  Receipt Date: 20180521
  Transmission Date: 20180711
  Serious: No
  Sender: FDA-Public Use
  Company Number: US-BION-006841

PATIENT
  Sex: Male

DRUGS (1)
  1. IBUPROFEN. [Suspect]
     Active Substance: IBUPROFEN
     Indication: BACK PAIN
     Dosage: 2 SOFT GELS DAILY OR EVERY OTHER DAY
     Route: 048

REACTIONS (2)
  - Somnolence [Recovered/Resolved]
  - Incorrect drug administration duration [Not Recovered/Not Resolved]
